FAERS Safety Report 22223680 (Version 1)
Quarter: 2023Q2

REPORT INFORMATION
  Report Type: Spontaneous
  Country: US (occurrence: None)
  Receive Date: 20230417
  Receipt Date: 20230417
  Transmission Date: 20230722
  Serious: Yes (Hospitalization)
  Sender: FDA-Public Use
  Company Number: None

PATIENT
  Age: 74 Year
  Sex: Male
  Weight: 118.7 kg

DRUGS (1)
  1. INREBIC [Suspect]
     Active Substance: FEDRATINIB HYDROCHLORIDE
     Indication: Myelofibrosis
     Dosage: FREQUENCY : DAILY;?
     Dates: start: 20230306, end: 20230327

REACTIONS (3)
  - Blood potassium increased [None]
  - Blood pressure decreased [None]
  - Asthenia [None]

NARRATIVE: CASE EVENT DATE: 20230327
